FAERS Safety Report 8615865-7 (Version None)
Quarter: 2012Q3

REPORT INFORMATION
  Report Type: 
  Country: None (occurrence: None)
  Receive Date: 20120823
  Receipt Date: 20120821
  Transmission Date: 20120928
  Serious: Yes (Other)
  Sender: FDA-Public Use
  Company Number: AU-ROCHE-1104953

PATIENT
  Sex: Female

DRUGS (3)
  1. ZOLOFT [Concomitant]
     Route: 048
     Dates: start: 20120815
  2. ACTEMRA [Suspect]
     Indication: RHEUMATOID ARTHRITIS
     Route: 042
  3. LEVOTHYROXINE SODIUM [Concomitant]
     Route: 048

REACTIONS (1)
  - RENAL IMPAIRMENT [None]
